FAERS Safety Report 20024179 (Version 1)
Quarter: 2021Q4

REPORT INFORMATION
  Report Type: Spontaneous
  Country: AT (occurrence: AT)
  Receive Date: 20211102
  Receipt Date: 20211102
  Transmission Date: 20220303
  Serious: Yes (Death, Hospitalization)
  Sender: FDA-Public Use
  Company Number: None

PATIENT
  Age: 88 Year
  Sex: Male
  Weight: 85 kg

DRUGS (5)
  1. CITALOPRAM [Interacting]
     Active Substance: CITALOPRAM HYDROBROMIDE
     Indication: Product used for unknown indication
     Dosage: 1 DOSAGE FORM, QD
     Dates: start: 201901
  2. LORAZEPAM [Interacting]
     Active Substance: LORAZEPAM
     Indication: Sedation
     Dosage: UNK
     Dates: start: 20190117
  3. LORAZEPAM [Interacting]
     Active Substance: LORAZEPAM
     Indication: Delirium
  4. QUETIAPINE FUMARATE [Interacting]
     Active Substance: QUETIAPINE FUMARATE
     Indication: Sedation
     Dosage: 2 DOSAGE FORM, QD
     Dates: start: 201901
  5. MEMANTINE [Concomitant]
     Active Substance: MEMANTINE
     Dosage: UNK

REACTIONS (19)
  - Sedation complication [Fatal]
  - Disturbance in attention [Not Recovered/Not Resolved]
  - Sepsis [Unknown]
  - Cardio-respiratory distress [Not Recovered/Not Resolved]
  - Fall [Unknown]
  - Infection [Unknown]
  - Pneumonia aspiration [Unknown]
  - Hypovolaemic shock [Unknown]
  - Condition aggravated [Not Recovered/Not Resolved]
  - Inflammatory marker increased [Unknown]
  - Basilar artery thrombosis [Unknown]
  - Arthralgia [Unknown]
  - Vomiting [Unknown]
  - Tachycardia [Not Recovered/Not Resolved]
  - Delirium [Unknown]
  - Hypotension [Not Recovered/Not Resolved]
  - Somnolence [Recovering/Resolving]
  - Contusion [Unknown]
  - Drug interaction [Unknown]

NARRATIVE: CASE EVENT DATE: 20190101
